FAERS Safety Report 23038540 (Version 1)
Quarter: 2023Q4

REPORT INFORMATION
  Report Type: Spontaneous
  Country: FR (occurrence: FR)
  Receive Date: 20231006
  Receipt Date: 20231006
  Transmission Date: 20240110
  Serious: Yes (Life-Threatening)
  Sender: FDA-Public Use
  Company Number: None

PATIENT
  Age: 75 Year
  Sex: Female
  Weight: 49 kg

DRUGS (5)
  1. VALIUM [Suspect]
     Active Substance: DIAZEPAM
     Indication: Parkinsonism
     Route: 050
     Dates: start: 20230905, end: 20230905
  2. MORPHINE [Suspect]
     Active Substance: MORPHINE
     Indication: Parkinsonism
     Route: 050
     Dates: start: 20230905, end: 20230905
  3. BENSERAZIDE HYDROCHLORIDE\LEVODOPA [Concomitant]
     Active Substance: BENSERAZIDE HYDROCHLORIDE\LEVODOPA
     Indication: Product used for unknown indication
     Dosage: MODOPAR 125 (100 MG/25 MG), GELULE
  4. BENSERAZIDE HYDROCHLORIDE\LEVODOPA [Concomitant]
     Active Substance: BENSERAZIDE HYDROCHLORIDE\LEVODOPA
     Indication: Product used for unknown indication
  5. APOKINON 30 mg/3 ml (1 POUR CENT), solution injectable en stylo pre... [Concomitant]
     Indication: Parkinsonism
     Route: 050
     Dates: start: 20230905, end: 20230905

REACTIONS (3)
  - Miosis [Recovered/Resolved]
  - Coma [Recovered/Resolved]
  - Incorrect dose administered [Recovered/Resolved]

NARRATIVE: CASE EVENT DATE: 20230905
